FAERS Safety Report 13950374 (Version 3)
Quarter: 2017Q4

REPORT INFORMATION
  Report Type: Report from Study
  Country: US (occurrence: US)
  Receive Date: 20170908
  Receipt Date: 20171019
  Transmission Date: 20180320
  Serious: Yes (Hospitalization, Other)
  Sender: FDA-Public Use
  Company Number: US-BAYER-2017-093078

PATIENT
  Age: 54 Year
  Sex: Female
  Weight: 77.1 kg

DRUGS (6)
  1. ADEMPAS [Suspect]
     Active Substance: RIOCIGUAT
     Indication: PULMONARY HYPERTENSION
     Dosage: 2.5 MG, TID
     Route: 048
  2. ADEMPAS [Suspect]
     Active Substance: RIOCIGUAT
     Indication: PULMONARY HYPERTENSION
     Dosage: 2.5 MG, TID
     Route: 048
  3. OPSUMIT [Concomitant]
     Active Substance: MACITENTAN
     Dosage: UNK
  4. AMLODIPINE [Concomitant]
     Active Substance: AMLODIPINE BESYLATE
     Dosage: UNK
  5. ADEMPAS [Suspect]
     Active Substance: RIOCIGUAT
     Indication: PULMONARY HYPERTENSION
     Dosage: 1.5 MG, TID
     Route: 048
  6. ADEMPAS [Suspect]
     Active Substance: RIOCIGUAT
     Indication: PULMONARY HYPERTENSION
     Dosage: UNK
     Dates: start: 20170316

REACTIONS (11)
  - Throat irritation [Unknown]
  - Swelling [None]
  - Haematemesis [Recovered/Resolved]
  - Catheterisation cardiac [None]
  - Blood iron decreased [Recovered/Resolved]
  - Blood count abnormal [Recovered/Resolved]
  - Tumour haemorrhage [Recovered/Resolved]
  - Hypotension [Unknown]
  - Headache [Unknown]
  - Pulmonary pain [Unknown]
  - Chest pain [Unknown]

NARRATIVE: CASE EVENT DATE: 2017
